FAERS Safety Report 7792351-8 (Version None)
Quarter: 2011Q4

REPORT INFORMATION
  Report Type: 
  Country: None (occurrence: None)
  Receive Date: 20111003
  Receipt Date: 20110923
  Transmission Date: 20120403
  Serious: Yes (Hospitalization, Other)
  Sender: FDA-Public Use
  Company Number: PHFR2004GB01795

PATIENT
  Sex: Female

DRUGS (3)
  1. AMISULPRIDE [Suspect]
  2. RISPERIDONE [Suspect]
  3. CLOZAPINE [Suspect]
     Indication: SCHIZOPHRENIA
     Dosage: 50MG/DAY
     Route: 048
     Dates: start: 20031215

REACTIONS (4)
  - ELECTROCARDIOGRAM QT PROLONGED [None]
  - DYSPNOEA [None]
  - MENTAL DISORDER [None]
  - TACHYCARDIA [None]
